FAERS Safety Report 6537275-9 (Version None)
Quarter: 2010Q1

REPORT INFORMATION
  Report Type: 
  Country: None (occurrence: None)
  Receive Date: 20100110
  Receipt Date: 20091228
  Transmission Date: 20100710
  Serious: Yes (Hospitalization)
  Sender: FDA-Public Use
  Company Number: 430033K09USA

PATIENT
  Age: 17 Year
  Sex: Female
  Weight: 66 kg

DRUGS (6)
  1. NOVANTRONE [Suspect]
     Indication: OFF LABEL USE
     Dosage: 12 MG/M2, 1 IN 3 MONTHS
     Dates: start: 20090116, end: 20091001
  2. BETASERON [Concomitant]
  3. TOPAMAX [Concomitant]
  4. GABAPENTIN [Concomitant]
  5. BACLOFEN [Concomitant]
  6. PROVIGIL [Concomitant]

REACTIONS (9)
  - ASTHENIA [None]
  - DYSARTHRIA [None]
  - DYSSTASIA [None]
  - EYE PAIN [None]
  - FACIAL PALSY [None]
  - GAIT DISTURBANCE [None]
  - HEADACHE [None]
  - HEMIPLEGIA [None]
  - MENTAL STATUS CHANGES [None]
